FAERS Safety Report 5727340-8 (Version None)
Quarter: 2008Q2

REPORT INFORMATION
  Report Type: 
  Country: None (occurrence: None)
  Receive Date: 20080505
  Receipt Date: 20080422
  Transmission Date: 20081010
  Serious: Yes (Other)
  Sender: FDA-Public Use
  Company Number: US-ROCHE-526159

PATIENT
  Sex: Female
  Weight: 67.6 kg

DRUGS (9)
  1. PEG-INTERFERON A-2A (RO 25-8310) [Suspect]
     Indication: HEPATITIS C
     Dosage: FORM:PRE-FILLED SYRINGE.
     Route: 065
     Dates: start: 20070919, end: 20080421
  2. PEG-INTERFERON A-2A (RO 25-8310) [Suspect]
     Route: 065
  3. RIBAVIRIN [Suspect]
     Indication: HEPATITIS C
     Route: 065
     Dates: start: 20070919, end: 20080421
  4. RIBAVIRIN [Suspect]
     Route: 065
  5. UNSPECIFIED MEDICATION [Concomitant]
     Indication: MIGRAINE
  6. XANAX [Concomitant]
  7. LISINOPRIL [Concomitant]
     Indication: BLOOD PRESSURE
  8. LISINOPRIL [Concomitant]
     Dosage: DOSE REDUCED TO HALF.
  9. PAROXETINE HCL [Concomitant]
     Indication: ANXIETY

REACTIONS (2)
  - MENINGITIS [None]
  - ROAD TRAFFIC ACCIDENT [None]
